FAERS Safety Report 14169618 (Version 1)
Quarter: 2017Q4

REPORT INFORMATION
  Report Type: Spontaneous
  Country: AU (occurrence: AU)
  Receive Date: 20171108
  Receipt Date: 20171108
  Transmission Date: 20180321
  Serious: Yes (Other)
  Sender: FDA-Public Use
  Company Number: AU-AMGEN-AUSSP2017165560

PATIENT
  Age: 12 Year
  Sex: Male

DRUGS (8)
  1. ARANESP [Suspect]
     Active Substance: DARBEPOETIN ALFA
     Indication: CHRONIC KIDNEY DISEASE
     Dosage: 20 MCG, QMO
     Route: 058
     Dates: start: 2015
  2. CALCIUM CARBONATE. [Concomitant]
     Active Substance: CALCIUM CARBONATE
     Dosage: UNK UNK, AS NECESSARY
  3. SODIUM BICARBONATE. [Concomitant]
     Active Substance: SODIUM BICARBONATE
     Dosage: UNK UNK, AS NECESSARY
  4. ARANESP [Suspect]
     Active Substance: DARBEPOETIN ALFA
     Dosage: 20 MCG, Q2WK
     Route: 058
     Dates: start: 20171002
  5. IRON [Concomitant]
     Active Substance: IRON
     Dosage: UNK UNK, AS NECESSARY
  6. BACTROBAN [Concomitant]
     Active Substance: MUPIROCIN\MUPIROCIN CALCIUM
     Dosage: UNK UNK, AS NECESSARY
  7. CLINDAMYCIN. [Concomitant]
     Active Substance: CLINDAMYCIN
     Dosage: UNK
     Dates: start: 2017
  8. CALCITROL [Concomitant]
     Active Substance: CALCITRIOL
     Dosage: UNK UNK, AS NECESSARY

REACTIONS (3)
  - Ear discomfort [Recovered/Resolved]
  - Tinnitus [Recovered/Resolved]
  - Deafness transitory [Recovered/Resolved]

NARRATIVE: CASE EVENT DATE: 201710
